FAERS Safety Report 15191678 (Version 4)
Quarter: 2019Q3

REPORT INFORMATION
  Report Type: Spontaneous
  Country: US (occurrence: US)
  Receive Date: 20180724
  Receipt Date: 20190919
  Transmission Date: 20191004
  Serious: Yes (Hospitalization, Other)
  Sender: FDA-Public Use
  Company Number: US-ABBVIE-18K-163-2426211-00

PATIENT
  Age: 40 Year
  Sex: Female
  Weight: 98.97 kg

DRUGS (9)
  1. ENBREL [Suspect]
     Active Substance: ETANERCEPT
     Indication: RHEUMATOID ARTHRITIS
     Route: 065
     Dates: start: 2007, end: 2014
  2. PLAQUENIL [Suspect]
     Active Substance: HYDROXYCHLOROQUINE SULFATE
     Indication: RHEUMATOID ARTHRITIS
     Route: 065
     Dates: end: 201803
  3. XELJANZ XR [Concomitant]
     Active Substance: TOFACITINIB CITRATE
     Dates: start: 20180629
  4. SULFASALASIN [Concomitant]
     Active Substance: SULFASALAZINE
     Indication: PRODUCT USED FOR UNKNOWN INDICATION
     Dates: end: 201803
  5. METHOTREXATE. [Concomitant]
     Active Substance: METHOTREXATE
     Indication: PRODUCT USED FOR UNKNOWN INDICATION
     Dates: end: 201805
  6. ENBREL [Suspect]
     Active Substance: ETANERCEPT
     Route: 058
     Dates: end: 201803
  7. XELJANZ [Concomitant]
     Active Substance: TOFACITINIB CITRATE
     Indication: PRODUCT USED FOR UNKNOWN INDICATION
     Route: 065
  8. HUMIRA [Suspect]
     Active Substance: ADALIMUMAB
     Indication: RHEUMATOID ARTHRITIS
     Route: 058
     Dates: end: 201803
  9. XELJANZ XR [Concomitant]
     Active Substance: TOFACITINIB CITRATE
     Indication: PRODUCT USED FOR UNKNOWN INDICATION
     Dates: end: 201802

REACTIONS (9)
  - Rheumatoid arthritis [Recovering/Resolving]
  - Adverse event [Unknown]
  - Axonal neuropathy [Not Recovered/Not Resolved]
  - Off label use [Unknown]
  - Hospitalisation [Unknown]
  - Axonal neuropathy [Unknown]
  - Multiple sclerosis [Unknown]
  - Therapeutic product effect incomplete [Unknown]
  - Drug eruption [Unknown]

NARRATIVE: CASE EVENT DATE: 2007
